FAERS Safety Report 9248614 (Version 1)
Quarter: 2013Q2

REPORT INFORMATION
  Report Type: Spontaneous
  Country: BR (occurrence: BR)
  Receive Date: 20130423
  Receipt Date: 20130423
  Transmission Date: 20140414
  Serious: Yes (Other)
  Sender: FDA-Public Use
  Company Number: BR-ROCHE-1215186

PATIENT
  Age: 26 Year
  Sex: Male

DRUGS (8)
  1. RITUXIMAB [Suspect]
     Indication: PRIMARY MEDIASTINAL LARGE B-CELL LYMPHOMA
     Route: 065
  2. CYCLOPHOSPHAMIDE [Suspect]
     Indication: PRIMARY MEDIASTINAL LARGE B-CELL LYMPHOMA
     Route: 065
  3. HYDROXYDAUNORUBICIN [Suspect]
     Indication: PRIMARY MEDIASTINAL LARGE B-CELL LYMPHOMA
     Route: 065
  4. ONCOVIN [Suspect]
     Indication: PRIMARY MEDIASTINAL LARGE B-CELL LYMPHOMA
     Route: 065
  5. PREDNISONE [Suspect]
     Indication: PRIMARY MEDIASTINAL LARGE B-CELL LYMPHOMA
     Route: 065
  6. DEXAMETHASONE [Concomitant]
  7. CYTARABINE [Concomitant]
  8. CISPLATIN [Concomitant]

REACTIONS (4)
  - Weight decreased [Unknown]
  - Therapeutic response decreased [Unknown]
  - Cough [Unknown]
  - Night sweats [Unknown]
